FAERS Safety Report 5371825-3 (Version None)
Quarter: 2007Q2

REPORT INFORMATION
  Report Type: 
  Country: None (occurrence: None)
  Receive Date: 20070627
  Receipt Date: 20070621
  Transmission Date: 20071010
  Serious: Yes (Hospitalization)
  Sender: FDA-Public Use
  Company Number: BE-JNJFOC-20070605006

PATIENT
  Sex: Male
  Weight: 91 kg

DRUGS (9)
  1. TMC114 [Suspect]
     Route: 048
  2. TMC114 [Suspect]
     Indication: HIV INFECTION
     Route: 048
  3. RITONAVIR [Suspect]
     Indication: HIV INFECTION
     Route: 048
  4. ZIDOVUDINE [Concomitant]
     Indication: HIV INFECTION
     Route: 048
  5. TENOFOVIR [Concomitant]
     Indication: HIV INFECTION
     Route: 048
  6. ABACAVIR [Concomitant]
     Indication: HIV INFECTION
     Route: 048
  7. LISINOPRIL [Concomitant]
     Indication: CARDIOVASCULAR EVENT PROPHYLAXIS
     Route: 048
  8. ASPIRIN [Concomitant]
     Indication: ARTERIAL STENOSIS
     Route: 048
  9. ASPIRIN [Concomitant]
     Indication: INTERMITTENT CLAUDICATION
     Route: 048

REACTIONS (3)
  - ARTERIAL STENOSIS [None]
  - INTERMITTENT CLAUDICATION [None]
  - PERCUTANEOUS CORONARY INTERVENTION [None]
